FAERS Safety Report 10244848 (Version 2)
Quarter: 2014Q2

REPORT INFORMATION
  Report Type: Spontaneous
  Country: JP (occurrence: JP)
  Receive Date: 20140618
  Receipt Date: 20140627
  Transmission Date: 20141212
  Serious: Yes (Death, Hospitalization)
  Sender: FDA-Public Use
  Company Number: PHHY2014JP074386

PATIENT
  Age: 74 Year
  Sex: Male

DRUGS (5)
  1. ONBREZ [Suspect]
     Indication: PULMONARY FIBROSIS
     Dosage: 150 UG, QD
     Route: 055
     Dates: start: 201309
  2. ONBREZ [Suspect]
     Indication: OFF LABEL USE
  3. SEEBRI BREEZHALER [Suspect]
     Dosage: 50 UG, QD
     Route: 055
     Dates: start: 201311
  4. FEXOFENADINE HCL AND PSEUDOEPHEDRINE HCL [Concomitant]
     Route: 048
  5. ASPARA K [Concomitant]

REACTIONS (3)
  - Pneumonia [Fatal]
  - Fall [Unknown]
  - Rib fracture [Unknown]
